FAERS Safety Report 9061974 (Version 1)
Quarter: 2013Q1

REPORT INFORMATION
  Report Type: Spontaneous
  Country: IT (occurrence: None)
  Receive Date: 20130122
  Receipt Date: 20130122
  Transmission Date: 20140127
  Serious: Yes (Other)
  Sender: FDA-Public Use
  Company Number: 2013AP000087

PATIENT
  Age: 29 Year
  Sex: Female

DRUGS (3)
  1. LEVETIRACETAM (LEVETIRACETAM) [Suspect]
     Indication: EPILEPSY
     Route: 048
     Dates: start: 20121116, end: 20121123
  2. FRISIUM [Concomitant]
  3. DEPAKIN (VALPROATE SODIUM) [Concomitant]

REACTIONS (2)
  - Epilepsy [None]
  - Product substitution issue [None]
